FAERS Safety Report 5988448-5 (Version None)
Quarter: 2008Q4

REPORT INFORMATION
  Report Type: 
  Country: None (occurrence: None)
  Receive Date: 20081210
  Receipt Date: 20081208
  Transmission Date: 20090506
  Serious: Yes (Life-Threatening, Hospitalization, Other)
  Sender: FDA-Public Use
  Company Number: PL-BRISTOL-MYERS SQUIBB COMPANY-14370837

PATIENT
  Age: 34 Year
  Sex: Male
  Weight: 64 kg

DRUGS (4)
  1. VIDEX [Suspect]
     Indication: HIV INFECTION
     Route: 048
     Dates: start: 20061130, end: 20081001
  2. REYATAZ [Suspect]
     Indication: HIV INFECTION
     Dosage: REYATAZ 150, 1X2TABL FROM 30 NOVEMBER
     Dates: start: 20061130
  3. ZIAGEN [Suspect]
     Indication: HIV INFECTION
     Dosage: TAB,2X1TABL
     Dates: start: 20061130, end: 20081001
  4. NORVIR [Suspect]
     Indication: HIV INFECTION
     Dates: start: 20061130

REACTIONS (3)
  - CORONARY ARTERY OCCLUSION [None]
  - MYOCARDIAL INFARCTION [None]
  - PNEUMONIA [None]
